FAERS Safety Report 8026132-7 (Version None)
Quarter: 2012Q1

REPORT INFORMATION
  Report Type: 
  Country: None (occurrence: None)
  Receive Date: 20120105
  Receipt Date: 20110712
  Transmission Date: 20120608
  Serious: No
  Sender: FDA-Public Use
  Company Number: US-ABBOTT-11P-163-0838639-00

PATIENT
  Sex: Male
  Weight: 99.88 kg

DRUGS (7)
  1. UNKNOWN ANXIETY MEDICATION [Concomitant]
     Indication: PANIC DISORDER
  2. SYNTHROID [Suspect]
     Indication: HYPOTHYROIDISM
     Route: 048
     Dates: start: 20110401
  3. LORATADINE [Concomitant]
     Indication: PRODUCT USED FOR UNKNOWN INDICATION
  4. TRUVADA [Concomitant]
     Indication: HIV INFECTION
     Dosage: 300MG/200MG
     Route: 048
  5. NEXIUM [Concomitant]
     Indication: GASTROOESOPHAGEAL REFLUX DISEASE
     Route: 048
  6. KLONOPIN [Concomitant]
     Indication: ANXIETY
  7. ASPIRIN [Concomitant]
     Indication: PROPHYLAXIS

REACTIONS (3)
  - PARAESTHESIA [None]
  - HYPOAESTHESIA [None]
  - ANXIETY [None]
